FAERS Safety Report 5360133-2 (Version None)
Quarter: 2007Q2

REPORT INFORMATION
  Report Type: 
  Country: None (occurrence: None)
  Receive Date: 20070618
  Receipt Date: 20070606
  Transmission Date: 20071010
  Serious: Yes (Hospitalization, Disabling)
  Sender: FDA-Public Use
  Company Number: PHHO2004GB08235

PATIENT
  Age: 38 Year
  Sex: Male
  Weight: 71.8 kg

DRUGS (6)
  1. ERL080 [Suspect]
     Indication: RENAL TRANSPLANT
     Dosage: 720 MG, BID
     Route: 048
     Dates: start: 20040226, end: 20040616
  2. ERL080 [Suspect]
     Dosage: 360 MG, BID
     Route: 048
  3. TACROLIMUS [Suspect]
     Indication: RENAL TRANSPLANT
     Dosage: 3.5 MG, BID
     Route: 048
     Dates: start: 20040319
  4. TACROLIMUS [Suspect]
     Dosage: 2 MG, BID
     Route: 048
     Dates: end: 20040925
  5. NEORAL [Suspect]
     Indication: RENAL TRANSPLANT
     Dosage: 350 MG, BID
     Route: 048
     Dates: start: 20040226
  6. PREDNISOLONE [Suspect]
     Indication: KIDNEY TRANSPLANT REJECTION
     Dosage: 20 MG, QD
     Route: 048
     Dates: start: 20040922

REACTIONS (19)
  - ANURIA [None]
  - BLOOD CREATININE INCREASED [None]
  - BLOOD LACTATE DEHYDROGENASE [None]
  - BLOOD TEST ABNORMAL [None]
  - CATHETER PLACEMENT [None]
  - DRUG INEFFECTIVE [None]
  - HAEMOLYSIS [None]
  - HAEMOLYTIC URAEMIC SYNDROME [None]
  - HAPTOGLOBIN ABNORMAL [None]
  - KIDNEY TRANSPLANT REJECTION [None]
  - LOCAL SWELLING [None]
  - LOCALISED OEDEMA [None]
  - OEDEMA GENITAL [None]
  - PYELONEPHRITIS [None]
  - RENAL IMPAIRMENT [None]
  - RETICULOCYTE COUNT ABNORMAL [None]
  - SCROTAL OEDEMA [None]
  - URINARY RETENTION [None]
  - URINE ANALYSIS ABNORMAL [None]
